FAERS Safety Report 24541940 (Version 1)
Quarter: 2024Q4

REPORT INFORMATION
  Report Type: Spontaneous
  Country: DE (occurrence: DE)
  Receive Date: 20241023
  Receipt Date: 20241023
  Transmission Date: 20250114
  Serious: Yes (Hospitalization, Other)
  Sender: TEVA
  Company Number: None

PATIENT
  Age: 60 Year
  Sex: Male
  Weight: 51 kg

DRUGS (2)
  1. PREGABALIN [Interacting]
     Active Substance: PREGABALIN
     Indication: Product substitution
     Route: 048
     Dates: start: 20240913, end: 20240923
  2. LEVOMETHADONE HYDROCHLORIDE [Interacting]
     Active Substance: LEVOMETHADONE HYDROCHLORIDE
     Indication: Product substitution
     Route: 048
     Dates: start: 20240913, end: 20240923

REACTIONS (3)
  - Respiratory depression [Recovered/Resolved]
  - Hypercapnia [Recovered/Resolved]
  - Potentiating drug interaction [Unknown]

NARRATIVE: CASE EVENT DATE: 20240923
